FAERS Safety Report 11981556 (Version 1)
Quarter: 2016Q1

REPORT INFORMATION
  Report Type: Spontaneous
  Country: US (occurrence: US)
  Receive Date: 20160130
  Receipt Date: 20160130
  Transmission Date: 20160526
  Serious: No
  Sender: FDA-Public Use
  Company Number: US-FRESENIUS KABI-FK201502277

PATIENT
  Sex: Female

DRUGS (1)
  1. CISPLATIN KABI [Suspect]
     Active Substance: CISPLATIN
     Indication: LUNG NEOPLASM MALIGNANT

REACTIONS (1)
  - Drug ineffective [Unknown]
